FAERS Safety Report 12083831 (Version 1)
Quarter: 2016Q1

REPORT INFORMATION
  Report Type: Report from Study
  Country: US (occurrence: US)
  Receive Date: 20160217
  Receipt Date: 20160217
  Transmission Date: 20160526
  Serious: Yes (Hospitalization, Other)
  Sender: FDA-Public Use
  Company Number: US-BAYER-2016-000898

PATIENT
  Age: 34 Year
  Sex: Female
  Weight: 56.69 kg

DRUGS (3)
  1. ADEMPAS [Suspect]
     Active Substance: RIOCIGUAT
     Indication: PULMONARY HYPERTENSION
     Dosage: UNK
     Dates: start: 20151214
  2. ADEMPAS [Suspect]
     Active Substance: RIOCIGUAT
     Indication: PULMONARY HYPERTENSION
     Dosage: 0.5 MG, TID
     Route: 048
     Dates: end: 20151230
  3. ADEMPAS [Suspect]
     Active Substance: RIOCIGUAT
     Indication: PULMONARY HYPERTENSION
     Dosage: UNK
     Dates: end: 20160118

REACTIONS (11)
  - Oedema [Unknown]
  - Oedema peripheral [Unknown]
  - Intentional product use issue [Unknown]
  - Hypertension [Unknown]
  - Feeling abnormal [Unknown]
  - Hospitalisation [Unknown]
  - Dyspnoea [Unknown]
  - Chest pain [Unknown]
  - Rales [Unknown]
  - Cough [Unknown]
  - Vomiting [Unknown]

NARRATIVE: CASE EVENT DATE: 20151230
